FAERS Safety Report 22010983 (Version 1)
Quarter: 2023Q1

REPORT INFORMATION
  Report Type: Spontaneous
  Country: US (occurrence: US)
  Receive Date: 20230220
  Receipt Date: 20230220
  Transmission Date: 20230418
  Serious: Yes (Other)
  Sender: FDA-Public Use
  Company Number: US-MYLANLABS-2023M1017651

PATIENT
  Age: 31 Year
  Sex: Male

DRUGS (9)
  1. ACETAMINOPHEN [Suspect]
     Active Substance: ACETAMINOPHEN
     Indication: Pain
     Dosage: UNK, PRN (DOSE: 5-325MG EVERY 6H AS NEEDED)
     Route: 065
  2. ACETAMINOPHEN [Suspect]
     Active Substance: ACETAMINOPHEN
     Indication: Radiculopathy
  3. NAPROXEN [Suspect]
     Active Substance: NAPROXEN
     Indication: Pain
     Dosage: UNK; DOSE: HIGH DOSE
     Route: 065
  4. NAPROXEN [Suspect]
     Active Substance: NAPROXEN
     Indication: Radiculopathy
  5. CYCLOBENZAPRINE [Suspect]
     Active Substance: CYCLOBENZAPRINE
     Indication: Pain
     Dosage: UNK
     Route: 065
  6. CYCLOBENZAPRINE [Suspect]
     Active Substance: CYCLOBENZAPRINE
     Indication: Radiculopathy
  7. HYDROCODONE [Suspect]
     Active Substance: HYDROCODONE
     Indication: Pain
     Dosage: UNK
     Route: 065
  8. HYDROCODONE [Suspect]
     Active Substance: HYDROCODONE
     Indication: Radiculopathy
  9. DIAZEPAM [Concomitant]
     Active Substance: DIAZEPAM
     Indication: Product used for unknown indication
     Dosage: 5 MILLIGRAM, PRN (DOSE: NIGHTLY AS NEEDED)
     Route: 065

REACTIONS (1)
  - Drug ineffective [Unknown]
